FAERS Safety Report 9056052 (Version 2)
Quarter: 2013Q1

REPORT INFORMATION
  Report Type: Spontaneous
  Country: AR (occurrence: AR)
  Receive Date: 20130205
  Receipt Date: 20130314
  Transmission Date: 20140127
  Serious: No
  Sender: FDA-Public Use
  Company Number: PHHY2013AR010156

PATIENT
  Sex: Female

DRUGS (1)
  1. DIOVAN [Suspect]
     Indication: HYPERTENSION
     Dosage: 320 MG, DAILY
     Route: 048

REACTIONS (2)
  - Confusional state [Not Recovered/Not Resolved]
  - Tremor [Not Recovered/Not Resolved]
